FAERS Safety Report 19896379 (Version 1)
Quarter: 2021Q3

REPORT INFORMATION
  Report Type: Report from Study
  Country: US (occurrence: US)
  Receive Date: 20210929
  Receipt Date: 20210929
  Transmission Date: 20211014
  Serious: Yes (Hospitalization, Other)
  Sender: FDA-Public Use
  Company Number: US-TAKEDA-2021TUS040211

PATIENT
  Age: 83 Year
  Sex: Female
  Weight: 39 kg

DRUGS (16)
  1. TEDUGLUTIDE [Suspect]
     Active Substance: TEDUGLUTIDE
     Indication: SHORT-BOWEL SYNDROME
     Dosage: 2 MILLIGRAM, QD
     Route: 058
     Dates: start: 20210504
  2. TEDUGLUTIDE [Suspect]
     Active Substance: TEDUGLUTIDE
     Indication: SHORT-BOWEL SYNDROME
     Dosage: 2 MILLIGRAM, QD
     Route: 058
     Dates: start: 20210504
  3. TEDUGLUTIDE [Suspect]
     Active Substance: TEDUGLUTIDE
     Dosage: 0.2 MILLILITER, QD
     Route: 058
     Dates: start: 20210526
  4. TEDUGLUTIDE [Suspect]
     Active Substance: TEDUGLUTIDE
     Dosage: 0.2 MILLILITER, QD
     Route: 058
     Dates: start: 20210526
  5. TEDUGLUTIDE [Suspect]
     Active Substance: TEDUGLUTIDE
     Indication: SHORT-BOWEL SYNDROME
     Dosage: 2 MILLIGRAM, QD
     Route: 058
     Dates: start: 20210504
  6. TEDUGLUTIDE [Suspect]
     Active Substance: TEDUGLUTIDE
     Dosage: 22.5 MILLIGRAM, QD
     Route: 058
     Dates: start: 20210317, end: 20210628
  7. TEDUGLUTIDE [Suspect]
     Active Substance: TEDUGLUTIDE
     Dosage: 2 MILLIGRAM, QD
     Route: 058
     Dates: start: 20210525, end: 20210708
  8. TEDUGLUTIDE [Suspect]
     Active Substance: TEDUGLUTIDE
     Dosage: 2 MILLIGRAM, QD
     Route: 058
     Dates: start: 20210525, end: 20210708
  9. TEDUGLUTIDE [Suspect]
     Active Substance: TEDUGLUTIDE
     Dosage: 2 MILLIGRAM, QD
     Route: 058
     Dates: start: 20210525, end: 20210708
  10. TEDUGLUTIDE [Suspect]
     Active Substance: TEDUGLUTIDE
     Dosage: 0.2 MILLILITER, QD
     Route: 058
     Dates: start: 20210526
  11. TEDUGLUTIDE [Suspect]
     Active Substance: TEDUGLUTIDE
     Dosage: 22.5 MILLIGRAM, QD
     Route: 058
     Dates: start: 20210317, end: 20210628
  12. TEDUGLUTIDE [Suspect]
     Active Substance: TEDUGLUTIDE
     Indication: SHORT-BOWEL SYNDROME
     Dosage: 2 MILLIGRAM, QD
     Route: 058
     Dates: start: 20210504
  13. TEDUGLUTIDE [Suspect]
     Active Substance: TEDUGLUTIDE
     Dosage: 2 MILLIGRAM, QD
     Route: 058
     Dates: start: 20210525, end: 20210708
  14. TEDUGLUTIDE [Suspect]
     Active Substance: TEDUGLUTIDE
     Dosage: 22.5 MILLIGRAM, QD
     Route: 058
     Dates: start: 20210317, end: 20210628
  15. TEDUGLUTIDE [Suspect]
     Active Substance: TEDUGLUTIDE
     Dosage: 22.5 MILLIGRAM, QD
     Route: 058
     Dates: start: 20210317, end: 20210628
  16. TEDUGLUTIDE [Suspect]
     Active Substance: TEDUGLUTIDE
     Dosage: 0.2 MILLILITER, QD
     Route: 058
     Dates: start: 20210526

REACTIONS (10)
  - Abdominal abscess [Unknown]
  - Abdominal discomfort [Recovering/Resolving]
  - Injection site bruising [Unknown]
  - Stoma complication [Unknown]
  - Abdominal distension [Unknown]
  - Therapy interrupted [Recovered/Resolved]
  - Cystitis [Unknown]
  - Urinary tract infection [Unknown]
  - Weight decreased [Unknown]
  - Abdominal pain [Unknown]

NARRATIVE: CASE EVENT DATE: 20210628
